FAERS Safety Report 5086050-3 (Version None)
Quarter: 2006Q3

REPORT INFORMATION
  Report Type: 
  Country: None (occurrence: None)
  Receive Date: 20060817
  Receipt Date: 20060802
  Transmission Date: 20061208
  Serious: Yes (Other)
  Sender: FDA-Public Use
  Company Number: DE-2006-021527

PATIENT
  Sex: Male

DRUGS (1)
  1. BETAFERON(INTERFERON BETA -1B) INJECTION, 250UG [Suspect]
     Dosage: SUBCUTANEOUS
     Route: 058
     Dates: start: 20030801

REACTIONS (1)
  - CUTANEOUS SARCOIDOSIS [None]
